FAERS Safety Report 21590109 (Version 1)
Quarter: 2022Q4

REPORT INFORMATION
  Report Type: Spontaneous
  Country: JP (occurrence: JP)
  Receive Date: 20221114
  Receipt Date: 20221114
  Transmission Date: 20230113
  Serious: Yes (Death, Other)
  Sender: FDA-Public Use
  Company Number: JP-PFIZER INC-202201288084

PATIENT
  Age: 6 Decade
  Sex: Female

DRUGS (2)
  1. METHOTREXATE SODIUM [Suspect]
     Active Substance: METHOTREXATE SODIUM
     Indication: Desmoid tumour
     Dosage: 25 MG, EVERY 2 WEEKS
  2. VINBLASTINE [Suspect]
     Active Substance: VINBLASTINE
     Indication: Desmoid tumour
     Dosage: 10 MG, EVERY 2 WEEKS

REACTIONS (4)
  - Sarcoma [Fatal]
  - Malignant transformation [Fatal]
  - Off label use [Unknown]
  - Off label use [Unknown]
